FAERS Safety Report 21895576 (Version 1)
Quarter: 2023Q1

REPORT INFORMATION
  Report Type: Spontaneous
  Country: US (occurrence: US)
  Receive Date: 20230123
  Receipt Date: 20230123
  Transmission Date: 20230417
  Serious: No
  Sender: FDA-Public Use
  Company Number: US-ELI_LILLY_AND_COMPANY-US202301007866

PATIENT

DRUGS (2)
  1. TALTZ [Suspect]
     Active Substance: IXEKIZUMAB
     Indication: Product used for unknown indication
     Dosage: 80 MG, UNKNOWN
     Route: 058
  2. ZITHROMAX [Suspect]
     Active Substance: AZITHROMYCIN DIHYDRATE
     Indication: Streptococcal infection
     Dosage: 2 DOSAGE FORM, DAILY
     Route: 065

REACTIONS (4)
  - Pallor [Unknown]
  - Streptococcal infection [Unknown]
  - Incorrect dosage administered [Unknown]
  - Nausea [Unknown]
